FAERS Safety Report 7298945-0 (Version None)
Quarter: 2011Q1

REPORT INFORMATION
  Report Type: 
  Country: None (occurrence: None)
  Receive Date: 20110217
  Receipt Date: 20110216
  Transmission Date: 20110831
  Serious: Yes (Life-Threatening, Hospitalization, Disabling)
  Sender: FDA-Public Use
  Company Number: NO-PFIZER INC-2011034246

PATIENT
  Age: 76 Year
  Sex: Male

DRUGS (7)
  1. FURIX [Concomitant]
     Dosage: 20 MG, UNK
     Route: 048
  2. RAMIPRIL [Concomitant]
     Dosage: 5 MG, UNK
     Route: 048
  3. METOPROLOL TARTRATE [Concomitant]
     Dosage: 50 MG, UNK
     Route: 048
  4. LIPITOR [Concomitant]
     Dosage: 20 MG, UNK
     Route: 048
  5. WARFARIN SODIUM [Concomitant]
     Dosage: UNK
     Route: 048
  6. CYKLOKAPRON [Suspect]
     Dosage: 1 G, 4X/DAY
     Route: 042
     Dates: start: 20110101
  7. NEXIUM [Concomitant]
     Dosage: 40 MG, UNK
     Route: 048

REACTIONS (2)
  - RENAL INFARCT [None]
  - THROMBOSIS [None]
